FAERS Safety Report 26043619 (Version 1)
Quarter: 2025Q4

REPORT INFORMATION
  Report Type: Spontaneous
  Country: US (occurrence: US)
  Receive Date: 20251113
  Receipt Date: 20251113
  Transmission Date: 20260117
  Serious: Yes (Hospitalization)
  Sender: Kenvue
  Company Number: None

PATIENT
  Age: 5 Year

DRUGS (1)
  1. ACETAMINOPHEN [Suspect]
     Active Substance: ACETAMINOPHEN
     Indication: Accidental exposure to product by child
     Dosage: UNKNOWN QUANTITY AND UNSPECIFIED STRENGTH
     Route: 048

REACTIONS (2)
  - Gastrointestinal disorder [Recovered/Resolved]
  - Accidental exposure to product by child [Unknown]
